FAERS Safety Report 22797153 (Version 2)
Quarter: 2023Q4

REPORT INFORMATION
  Report Type: Report from Study
  Country: SA (occurrence: SA)
  Receive Date: 20230808
  Receipt Date: 20231016
  Transmission Date: 20240110
  Serious: Yes (Other)
  Sender: FDA-Public Use
  Company Number: SA-BIOGEN-2023BI01220062

PATIENT
  Age: 8 Year
  Sex: Female

DRUGS (1)
  1. SPINRAZA [Suspect]
     Active Substance: NUSINERSEN
     Indication: Spinal muscular atrophy
     Dosage: LOADING DOSES (0, 14, 28, 63) THEN 1 MAINTENANCE DOSE EVERY 4 MONTHS
     Route: 050
     Dates: start: 20220901

REACTIONS (1)
  - Lower limb fracture [Recovered/Resolved]

NARRATIVE: CASE EVENT DATE: 20230730
